FAERS Safety Report 5098459-2 (Version None)
Quarter: 2006Q3

REPORT INFORMATION
  Report Type: 
  Country: None (occurrence: None)
  Receive Date: 20060906
  Receipt Date: 20060123
  Transmission Date: 20061208
  Serious: No
  Sender: FDA-Public Use
  Company Number: US-GLAXOSMITHKLINE-A0590508A

PATIENT
  Age: 52 Year
  Sex: Male

DRUGS (2)
  1. REQUIP [Suspect]
     Indication: PARKINSON'S DISEASE
     Dosage: 9MG UNKNOWN
     Route: 048
  2. KLONOPIN [Concomitant]

REACTIONS (1)
  - SOMNOLENCE [None]
